FAERS Safety Report 8112647-X (Version None)
Quarter: 2012Q1

REPORT INFORMATION
  Report Type: 
  Country: None (occurrence: None)
  Receive Date: 20120203
  Receipt Date: 20120125
  Transmission Date: 20120608
  Serious: Yes (Other)
  Sender: FDA-Public Use
  Company Number: AR-ROCHE-1036333

PATIENT
  Sex: Female

DRUGS (3)
  1. LUCENTIS [Suspect]
     Indication: DIABETIC RETINOPATHY
     Dates: start: 20111221
  2. DIOVAN [Concomitant]
     Indication: HYPERTENSION
  3. INSULIN [Concomitant]

REACTIONS (1)
  - SYNCOPE [None]
